FAERS Safety Report 18861101 (Version 6)
Quarter: 2021Q2

REPORT INFORMATION
  Report Type: Report from Study
  Country: US (occurrence: US)
  Receive Date: 20210208
  Receipt Date: 20210622
  Transmission Date: 20210717
  Serious: Yes (Hospitalization, Other)
  Sender: FDA-Public Use
  Company Number: NVSC2021US022071

PATIENT
  Age: 75 Year
  Sex: Male

DRUGS (1)
  1. ENTRESTO [Suspect]
     Active Substance: SACUBITRIL\VALSARTAN
     Indication: CARDIAC FAILURE
     Dosage: 0.5 DF, BID (49/51 MG, 1/2 TAB 2 X DAILY)
     Route: 048
     Dates: start: 202009

REACTIONS (16)
  - Head injury [Unknown]
  - Weight increased [Unknown]
  - Cerebral haemorrhage [Recovered/Resolved]
  - Gait disturbance [Recovering/Resolving]
  - Cough [Unknown]
  - Hypotension [Unknown]
  - Balance disorder [Not Recovered/Not Resolved]
  - Prostatic disorder [Unknown]
  - Weight decreased [Unknown]
  - Asthenia [Recovering/Resolving]
  - Thinking abnormal [Not Recovered/Not Resolved]
  - Wrong technique in product usage process [Not Recovered/Not Resolved]
  - Fluid retention [Not Recovered/Not Resolved]
  - Dizziness [Not Recovered/Not Resolved]
  - Amnesia [Not Recovered/Not Resolved]
  - Blood pressure decreased [Unknown]

NARRATIVE: CASE EVENT DATE: 202009
